FAERS Safety Report 18947689 (Version 2)
Quarter: 2021Q3

REPORT INFORMATION
  Report Type: Spontaneous
  Country: US (occurrence: US)
  Receive Date: 20210226
  Receipt Date: 20210825
  Transmission Date: 20211014
  Serious: Yes (Other)
  Sender: FDA-Public Use
  Company Number: US-ASTRAZENECA-2021A081063

PATIENT
  Sex: Male

DRUGS (3)
  1. UNSPECIFIED PAIN MANAGEMENT [Suspect]
     Active Substance: UNSPECIFIED INGREDIENT
  2. MOVANTIK [Suspect]
     Active Substance: NALOXEGOL OXALATE
     Route: 048
     Dates: end: 2019
  3. SYMBICORT [Suspect]
     Active Substance: BUDESONIDE\FORMOTEROL FUMARATE DIHYDRATE
     Indication: HYPERSENSITIVITY
     Dosage: 160/4.5MCG
     Route: 055

REACTIONS (20)
  - Sleep study abnormal [Unknown]
  - Treatment failure [Unknown]
  - Cough [Unknown]
  - Sneezing [Unknown]
  - Vomiting [Unknown]
  - Brain injury [Unknown]
  - Thinking abnormal [Unknown]
  - Cardiac disorder [Recovered/Resolved]
  - Autonomic dysreflexia [Unknown]
  - Mobility decreased [Unknown]
  - Ligament rupture [Not Recovered/Not Resolved]
  - Multiple allergies [Not Recovered/Not Resolved]
  - Acute kidney injury [Recovered/Resolved]
  - Respiratory disorder [Unknown]
  - Gastrointestinal disorder [Unknown]
  - Hypoxia [Unknown]
  - Immune system disorder [Unknown]
  - Bradycardia [Unknown]
  - Heart injury [Unknown]
  - Tissue injury [Unknown]

NARRATIVE: CASE EVENT DATE: 2019
